FAERS Safety Report 5092534-4 (Version None)
Quarter: 2006Q3

REPORT INFORMATION
  Report Type: 
  Country: None (occurrence: None)
  Receive Date: 20060830
  Receipt Date: 20060811
  Transmission Date: 20061208
  Serious: Yes (Death, Hospitalization)
  Sender: FDA-Public Use
  Company Number: PHEH2006US10273

PATIENT
  Age: 65 Year
  Sex: Female

DRUGS (3)
  1. EXJADE [Suspect]
     Dosage: 1000 MG, QD
     Route: 048
     Dates: start: 20060601, end: 20060719
  2. MULTIVITAMIN [Concomitant]
  3. TYLENOL [Concomitant]
     Dosage: UNK, PRN

REACTIONS (17)
  - APLASTIC ANAEMIA [None]
  - BACTERAEMIA [None]
  - CHILLS [None]
  - DISEASE PROGRESSION [None]
  - HAEMORRHAGE [None]
  - HEPATIC FAILURE [None]
  - HERPES SIMPLEX [None]
  - HYPERNATRAEMIA [None]
  - HYPOKALAEMIA [None]
  - HYPOTENSION [None]
  - MULTI-ORGAN FAILURE [None]
  - NEUTROPENIA [None]
  - PANCYTOPENIA [None]
  - PYREXIA [None]
  - RESPIRATORY FAILURE [None]
  - SEPSIS [None]
  - THROMBOCYTOPENIA [None]
